FAERS Safety Report 8724791 (Version 3)
Quarter: 2013Q1

REPORT INFORMATION
  Report Type: Spontaneous
  Country: US (occurrence: US)
  Receive Date: 20120815
  Receipt Date: 20130117
  Transmission Date: 20140127
  Serious: No
  Sender: FDA-Public Use
  Company Number: US-ASTRAZENECA-2012SE54669

PATIENT
  Age: 45 Year
  Sex: Male

DRUGS (4)
  1. SYMBICORT [Suspect]
     Indication: ASTHMA
     Dosage: 320MCG, 160/4.5 MCG, 2 PUFFS, TWO TIMES A DAY
     Route: 055
  2. SYMBICORT [Suspect]
     Indication: ASTHMA
     Dosage: 80/4.5 MCG, TWO PUFFS, BID
     Route: 055
  3. VENTOLIN [Concomitant]
     Route: 055
  4. UNSPECIFIED [Concomitant]

REACTIONS (3)
  - Dyspnoea [Unknown]
  - Drug dose omission [Unknown]
  - Circumstance or information capable of leading to medication error [Unknown]
